FAERS Safety Report 18749636 (Version 1)
Quarter: 2021Q1

REPORT INFORMATION
  Report Type: Spontaneous
  Country: US (occurrence: US)
  Receive Date: 20210117
  Receipt Date: 20210117
  Transmission Date: 20210419
  Serious: Yes (Other)
  Sender: FDA-Public Use
  Company Number: US-HIKMA PHARMACEUTICALS USA INC.-US-H14001-21-53358

PATIENT
  Age: 59 Year
  Sex: Male

DRUGS (5)
  1. COLECALCIFEROL [Suspect]
     Active Substance: CHOLECALCIFEROL
     Indication: OSTEOPENIA
     Route: 048
  2. CALCIUM CARBONATE. [Suspect]
     Active Substance: CALCIUM CARBONATE
     Indication: GASTROOESOPHAGEAL REFLUX DISEASE
     Route: 048
  3. TUMS [Suspect]
     Active Substance: CALCIUM CARBONATE
     Indication: GASTROOESOPHAGEAL REFLUX DISEASE
     Route: 065
  4. CALCIUM [Suspect]
     Active Substance: CALCIUM
     Indication: OSTEOPENIA
     Dosage: UNKNOWN
     Route: 065
  5. TESTOSTERONE. [Concomitant]
     Active Substance: TESTOSTERONE
     Indication: EMPTY SELLA SYNDROME
     Dosage: EXOGENOUS
     Route: 065

REACTIONS (5)
  - Hypercalcaemia [Recovered/Resolved]
  - Metabolic alkalosis [Recovering/Resolving]
  - Acute kidney injury [Recovered/Resolved]
  - Hypomagnesaemia [Unknown]
  - Milk-alkali syndrome [Recovering/Resolving]
